FAERS Safety Report 5193986-1 (Version None)
Quarter: 2006Q4

REPORT INFORMATION
  Report Type: 
  Country: None (occurrence: None)
  Receive Date: 20061228
  Receipt Date: 20060907
  Transmission Date: 20070319
  Serious: No
  Sender: FDA-Public Use
  Company Number: US-GLAXOSMITHKLINE-A0619421A

PATIENT
  Age: 62 Year
  Sex: Female

DRUGS (5)
  1. FLOVENT [Suspect]
     Indication: POST POLIO SYNDROME
     Dosage: 1PUFF THREE TIMES PER DAY
     Route: 055
     Dates: start: 20060801
  2. PREMARIN [Concomitant]
  3. SINGULAIR [Concomitant]
  4. ALLEGRA [Concomitant]
  5. NASONEX [Concomitant]

REACTIONS (3)
  - CHEST DISCOMFORT [None]
  - DYSPNOEA [None]
  - INCREASED BRONCHIAL SECRETION [None]
